FAERS Safety Report 21349009 (Version 1)
Quarter: 2022Q3

REPORT INFORMATION
  Report Type: Report from Study
  Country: US (occurrence: US)
  Receive Date: 20220919
  Receipt Date: 20220919
  Transmission Date: 20221027
  Serious: Yes (Congenital Anomaly)
  Sender: FDA-Public Use
  Company Number: US-GILEAD-2022-0592825

PATIENT

DRUGS (4)
  1. REMDESIVIR [Suspect]
     Active Substance: REMDESIVIR
     Indication: COVID-19
     Dosage: 200 MG, ONCE
     Route: 064
  2. REMDESIVIR [Suspect]
     Active Substance: REMDESIVIR
     Dosage: 100 MG, QD
     Route: 064
  3. ECULIZUMAB [Concomitant]
     Active Substance: ECULIZUMAB
  4. OXYGEN [Concomitant]
     Active Substance: OXYGEN

REACTIONS (3)
  - Preauricular cyst [Unknown]
  - Melanoderma [Unknown]
  - Foetal exposure during pregnancy [Recovered/Resolved]
